FAERS Safety Report 23780338 (Version 1)
Quarter: 2024Q2

REPORT INFORMATION
  Report Type: Spontaneous
  Country: US (occurrence: US)
  Receive Date: 20240424
  Receipt Date: 20240424
  Transmission Date: 20240716
  Serious: Yes (Other)
  Sender: FDA-Public Use
  Company Number: US-BRISTOL-MYERS SQUIBB COMPANY-2024-064561

PATIENT
  Age: 88 Year
  Sex: Female
  Weight: 57.6 kg

DRUGS (2)
  1. REVLIMID [Suspect]
     Active Substance: LENALIDOMIDE
     Indication: Plasma cell myeloma
     Dosage: FREQUENCY: 1 CAPSULE EVERY DAY FOR 21 DAYS ON AND OFF FOR 7 DAYS
     Route: 048
     Dates: start: 20220602
  2. DEXAMETHASONE [Concomitant]
     Active Substance: DEXAMETHASONE

REACTIONS (1)
  - Drug ineffective [Unknown]
